FAERS Safety Report 15194117 (Version 1)
Quarter: 2018Q3

REPORT INFORMATION
  Report Type: Report from Study
  Country: IT (occurrence: IT)
  Receive Date: 20180725
  Receipt Date: 20180725
  Transmission Date: 20181010
  Serious: Yes (Other)
  Sender: FDA-Public Use
  Company Number: IT-PFIZER INC-2018295293

PATIENT
  Age: 31 Year
  Sex: Female

DRUGS (4)
  1. METHOTREXATE. [Suspect]
     Active Substance: METHOTREXATE
     Indication: PROPHYLAXIS
     Dosage: 12 MG, 2X/WEEK (( TWICE WEEKLY, FOR 4?6 WEEKS)
     Route: 037
  2. PREDNISONE. [Concomitant]
     Active Substance: PREDNISONE
     Indication: PROPHYLAXIS
     Dosage: 40 MG, WEEKLY ( TWICE WEEKLY, FOR 4?6 WEEKS)
     Route: 037
  3. METHOTREXATE. [Suspect]
     Active Substance: METHOTREXATE
     Indication: CENTRAL NERVOUS SYSTEM LEUKAEMIA
     Dosage: 12 MG, WEEKLY(WEEKLY X 5, ALWAYS VIA LUMBAR ROUTE, MONTHLY, FOR A TOTAL OF 17 DOSES)
     Route: 037
  4. PREDNISONE. [Concomitant]
     Active Substance: PREDNISONE
     Indication: CENTRAL NERVOUS SYSTEM LEUKAEMIA
     Dosage: 40 MG, WEEKLY  (40 MG WEEKLY X 5, AND THEN MONTHLY, FOR A TOTAL OF 17 DOSES)
     Route: 037

REACTIONS (1)
  - Leukoencephalopathy [Unknown]
